FAERS Safety Report 8046653-0 (Version None)
Quarter: 2012Q1

REPORT INFORMATION
  Report Type: 
  Country: None (occurrence: None)
  Receive Date: 20120114
  Receipt Date: 20120110
  Transmission Date: 20120608
  Serious: No
  Sender: FDA-Public Use
  Company Number: US-BAYER-2012-003833

PATIENT
  Age: 68 Year
  Sex: Female
  Weight: 82 kg

DRUGS (5)
  1. SYMBICORT [Concomitant]
  2. POLYETHYLENE GLYCOL [Concomitant]
  3. MORPHINE [Concomitant]
  4. ALEVE (CAPLET) [Suspect]
     Indication: BACK PAIN
     Dosage: 1 DF, BID
     Route: 048
     Dates: end: 20120109
  5. MEGESTROL ACETATE [Concomitant]

REACTIONS (1)
  - ABDOMINAL PAIN UPPER [None]
